FAERS Safety Report 24468312 (Version 2)
Quarter: 2024Q4

REPORT INFORMATION
  Report Type: Spontaneous
  Country: IN (occurrence: IN)
  Receive Date: 20241018
  Receipt Date: 20241030
  Transmission Date: 20250114
  Serious: Yes (Death, Other)
  Sender: RANBAXY
  Company Number: IN-SUN PHARMACEUTICAL INDUSTRIES LTD-2024R1-474093

PATIENT
  Age: 29 Month
  Sex: Male

DRUGS (4)
  1. CLOBAZAM [Suspect]
     Active Substance: CLOBAZAM
     Indication: Epileptic encephalopathy
     Dosage: 1 MILLIGRAM/KILOGRAM, DAILY
     Route: 065
  2. LEVETIRACETAM [Suspect]
     Active Substance: LEVETIRACETAM
     Indication: Epileptic encephalopathy
     Dosage: 60 MILLIGRAM/KILOGRAM, DAILY
     Route: 065
  3. VIGABATRIN [Suspect]
     Active Substance: VIGABATRIN
     Indication: Epileptic encephalopathy
     Dosage: 25 MILLIGRAM/KILOGRAM, DAILY
     Route: 065
  4. VIGABATRIN [Suspect]
     Active Substance: VIGABATRIN
     Dosage: 75 MILLIGRAM/KILOGRAM, DAILY
     Route: 065

REACTIONS (1)
  - Sudden unexplained death in epilepsy [Fatal]
